FAERS Safety Report 18891804 (Version 4)
Quarter: 2021Q2

REPORT INFORMATION
  Report Type: Report from Study
  Country: AU (occurrence: AU)
  Receive Date: 20210215
  Receipt Date: 20210506
  Transmission Date: 20210717
  Serious: Yes (Death, Hospitalization)
  Sender: FDA-Public Use
  Company Number: AU-CELGENEUS-AUS-20210203327

PATIENT
  Age: 76 Year
  Sex: Male

DRUGS (6)
  1. AZACITIDINE. [Suspect]
     Active Substance: AZACITIDINE
     Dosage: 130MG (75MG/M2 BASIC DOSE)
     Route: 058
     Dates: start: 20190304, end: 20190308
  2. DIABEX SR [Concomitant]
     Indication: DIABETES MELLITUS
     Route: 065
     Dates: start: 2013
  3. ENTECAVIR. [Concomitant]
     Active Substance: ENTECAVIR
     Indication: HEPATITIS B
     Route: 065
     Dates: start: 2018
  4. AZACITIDINE. [Suspect]
     Active Substance: AZACITIDINE
     Indication: MYELODYSPLASTIC SYNDROME
     Route: 041
     Dates: start: 20190304, end: 20190308
  5. GLYADE MR [Concomitant]
     Indication: DIABETES MELLITUS
     Route: 065
     Dates: start: 2013
  6. REAPTAN [Concomitant]
     Active Substance: AMLODIPINE BESYLATE\PERINDOPRIL ARGININE
     Indication: HYPERTENSION
     Route: 065
     Dates: start: 2014

REACTIONS (2)
  - Cardiac arrest [Fatal]
  - Cerebrovascular accident [Fatal]

NARRATIVE: CASE EVENT DATE: 20190309
